FAERS Safety Report 15005812 (Version 1)
Quarter: 2018Q2

REPORT INFORMATION
  Report Type: Spontaneous
  Country: US (occurrence: US)
  Receive Date: 20180521
  Receipt Date: 20180521
  Transmission Date: 20180711
  Serious: Yes (Hospitalization)
  Sender: FDA-Public Use
  Company Number: None

PATIENT
  Age: 62 Year
  Sex: Male
  Weight: 82.8 kg

DRUGS (10)
  1. ECOTRIN [Suspect]
     Active Substance: ASPIRIN
     Indication: DEEP VEIN THROMBOSIS
     Dosage: CHRONIC
     Route: 048
  2. WARFARIN [Suspect]
     Active Substance: WARFARIN
     Indication: DEEP VEIN THROMBOSIS
     Dosage: CHRONIC
     Route: 048
  3. VITB12 [Concomitant]
  4. ZOFRAN [Concomitant]
     Active Substance: ONDANSETRON HYDROCHLORIDE
  5. APAP [Concomitant]
     Active Substance: ACETAMINOPHEN
  6. VITD [Concomitant]
  7. MVI [Concomitant]
     Active Substance: VITAMINS
  8. IMODIUM [Concomitant]
     Active Substance: LOPERAMIDE HYDROCHLORIDE
  9. LYRICA [Concomitant]
     Active Substance: PREGABALIN
  10. FE [Concomitant]
     Active Substance: IRON

REACTIONS (7)
  - Haemorrhagic anaemia [None]
  - International normalised ratio increased [None]
  - Gastrointestinal haemorrhage [None]
  - Coagulopathy [None]
  - Shock [None]
  - Gastrointestinal ulcer [None]
  - Hypotension [None]

NARRATIVE: CASE EVENT DATE: 20180215
